FAERS Safety Report 6384803-2 (Version None)
Quarter: 2009Q4

REPORT INFORMATION
  Report Type: 
  Country: None (occurrence: None)
  Receive Date: 20091001
  Receipt Date: 20090923
  Transmission Date: 20100525
  Serious: Yes (Hospitalization)
  Sender: FDA-Public Use
  Company Number: FR-GENENTECH-289683

PATIENT
  Age: 82 Year
  Sex: Female

DRUGS (1)
  1. AVASTIN [Suspect]
     Indication: VISUAL ACUITY REDUCED
     Dosage: 0.05 ML, UNK
     Route: 031

REACTIONS (4)
  - ANGLE CLOSURE GLAUCOMA [None]
  - NAUSEA [None]
  - RETINAL HAEMORRHAGE [None]
  - RETINAL ISCHAEMIA [None]
